FAERS Safety Report 16628093 (Version 1)
Quarter: 2019Q3

REPORT INFORMATION
  Report Type: Spontaneous
  Country: US (occurrence: US)
  Receive Date: 20190724
  Receipt Date: 20190724
  Transmission Date: 20191004
  Serious: No
  Sender: FDA-Public Use
  Company Number: None

PATIENT
  Age: 62 Year
  Sex: Male

DRUGS (2)
  1. OXYCODONE [Suspect]
     Active Substance: OXYCODONE
     Indication: PAIN
  2. OXYCODONE [Suspect]
     Active Substance: OXYCODONE

REACTIONS (5)
  - Malaise [None]
  - Influenza like illness [None]
  - Pruritus [None]
  - Withdrawal syndrome [None]
  - Nausea [None]

NARRATIVE: CASE EVENT DATE: 20190629
